FAERS Safety Report 8299355-X (Version None)
Quarter: 2012Q2

REPORT INFORMATION
  Report Type: 
  Country: None (occurrence: None)
  Receive Date: 20120419
  Receipt Date: 20120411
  Transmission Date: 20120825
  Serious: Yes (Other)
  Sender: FDA-Public Use
  Company Number: BR-ROCHE-1001873

PATIENT
  Sex: Female
  Weight: 54 kg

DRUGS (3)
  1. MABTHERA [Suspect]
     Indication: RHEUMATOID ARTHRITIS
     Route: 042
     Dates: start: 20100501
  2. MABTHERA [Suspect]
     Dates: start: 20111001
  3. MABTHERA [Suspect]
     Dates: start: 20101201

REACTIONS (5)
  - OSTEOARTHRITIS [None]
  - TOOTH DISORDER [None]
  - THERAPEUTIC RESPONSE DECREASED [None]
  - SPINAL OSTEOARTHRITIS [None]
  - HEPATIC ENZYME ABNORMAL [None]
